FAERS Safety Report 4358294-7 (Version None)
Quarter: 2004Q2

REPORT INFORMATION
  Report Type: 
  Country: None (occurrence: None)
  Receive Date: 20040514
  Receipt Date: 20040504
  Transmission Date: 20050107
  Serious: Yes (Hospitalization, Other)
  Sender: FDA-Public Use
  Company Number: FR-BRISTOL-MYERS SQUIBB COMPANY-12579363

PATIENT
  Age: 34 Year
  Sex: Male
  Weight: 38 kg

DRUGS (6)
  1. VIDEX [Suspect]
     Indication: HIV INFECTION
     Dosage: DOSAGE FORM: TABLET; INTERRUPTED MAR- TO 15-AUG-2003
     Route: 048
     Dates: start: 19970801
  2. CRIXIVAN [Suspect]
     Indication: HIV INFECTION
     Dosage: INTERRUPTED MAR- TO 15-AUG-2003
     Route: 048
     Dates: start: 19970101
  3. NORVIR [Suspect]
     Dosage: DOSAGE FORM: TABLET; INTERRUPTED MAR- TO 15-AUG-2003
     Route: 048
     Dates: start: 19970101
  4. EPIVIR [Suspect]
     Indication: HIV INFECTION
     Route: 048
     Dates: start: 20030815
  5. VIRAMUNE [Suspect]
     Indication: HIV INFECTION
     Route: 048
     Dates: start: 20030815
  6. KALETRA [Suspect]
     Route: 048
     Dates: start: 20030815

REACTIONS (4)
  - CYTOLYTIC HEPATITIS [None]
  - CYTOMEGALOVIRUS TEST POSITIVE [None]
  - DIARRHOEA [None]
  - WEIGHT DECREASED [None]
